FAERS Safety Report 5976149-9 (Version None)
Quarter: 2008Q4

REPORT INFORMATION
  Report Type: 
  Country: None (occurrence: None)
  Receive Date: 20081202
  Receipt Date: 20080212
  Transmission Date: 20090506
  Serious: No
  Sender: FDA-Public Use
  Company Number: US-AMGEN-KDL265060

PATIENT
  Sex: Female

DRUGS (14)
  1. ENBREL [Suspect]
     Indication: RHEUMATOID ARTHRITIS
     Dates: end: 20080101
  2. AMBIEN [Concomitant]
  3. PREDNISONE TAB [Concomitant]
  4. ASPIRIN [Concomitant]
  5. DIOVAN [Concomitant]
  6. MIACALCIN [Concomitant]
  7. PRAVACHOL [Concomitant]
  8. PREVACID [Concomitant]
  9. ZYRTEC [Concomitant]
  10. ACIDOPHILUS [Concomitant]
  11. CALCIUM WITH VITAMIN D [Concomitant]
  12. LOVAZA [Concomitant]
  13. UNSPECIFIED MEDICATION [Concomitant]
  14. ISOSORBIDE MONONITRATE [Concomitant]

REACTIONS (8)
  - ABDOMINAL DISTENSION [None]
  - DRY MOUTH [None]
  - INJECTION SITE SWELLING [None]
  - MUSCLE SWELLING [None]
  - OEDEMA PERIPHERAL [None]
  - RHEUMATOID ARTHRITIS [None]
  - SWELLING [None]
  - TOOTH INFECTION [None]
